FAERS Safety Report 12674478 (Version 1)
Quarter: 2016Q3

REPORT INFORMATION
  Report Type: Spontaneous
  Country: US (occurrence: US)
  Receive Date: 20160822
  Receipt Date: 20160822
  Transmission Date: 20161109
  Serious: No
  Sender: FDA-Public Use
  Company Number: US-BEH-2016060662

PATIENT
  Sex: Female
  Weight: 68.04 kg

DRUGS (23)
  1. DIPHENHYDRAMINE. [Concomitant]
     Active Substance: DIPHENHYDRAMINE
  2. LIDOCAINE/PRILOCAINE [Concomitant]
     Active Substance: LIDOCAINE\PRILOCAINE
  3. HEPARIN [Concomitant]
     Active Substance: HEPARIN SODIUM
  4. PAXIL [Concomitant]
     Active Substance: PAROXETINE HYDROCHLORIDE
  5. OXYGEN. [Concomitant]
     Active Substance: OXYGEN
  6. ZEMAIRA [Suspect]
     Active Substance: .ALPHA.1-PROTEINASE INHIBITOR HUMAN
     Dosage: STRENGTH 1036 MG/VL. ONGOING
     Route: 042
  7. MAGNESIUM [Concomitant]
     Active Substance: MAGNESIUM
  8. ASA ADULT LOW DOSE EC [Concomitant]
  9. MUCINEX [Concomitant]
     Active Substance: GUAIFENESIN
  10. HYDROXYZINE [Concomitant]
     Active Substance: HYDROXYZINE\HYDROXYZINE HYDROCHLORIDE
  11. PULMICORT TURBUHALER [Concomitant]
     Active Substance: BUDESONIDE
  12. ALKA-SELTZER [Concomitant]
     Active Substance: ANHYDROUS CITRIC ACID\ASPIRIN\SODIUM BICARBONATE
  13. ALBUTEROL. [Concomitant]
     Active Substance: ALBUTEROL
  14. CLARITIN [Concomitant]
     Active Substance: LORATADINE
  15. SODIUM CHLORIDE. [Concomitant]
     Active Substance: SODIUM CHLORIDE
  16. EPIPEN [Concomitant]
     Active Substance: EPINEPHRINE
  17. PROAIR HFA [Concomitant]
     Active Substance: ALBUTEROL SULFATE
  18. PRILOSEC [Concomitant]
     Active Substance: OMEPRAZOLE MAGNESIUM
  19. CALTRATE WITH VITAMIN D [Concomitant]
     Active Substance: CALCIUM CARBONATE\CHOLECALCIFEROL
  20. ZEMAIRA [Suspect]
     Active Substance: .ALPHA.1-PROTEINASE INHIBITOR HUMAN
     Indication: ALPHA-1 ANTI-TRYPSIN DEFICIENCY
     Dosage: STRENGTH 1036 MG/VL. ONGOING
     Route: 042
  21. LOVENOX [Concomitant]
     Active Substance: ENOXAPARIN SODIUM
  22. PREDNISONE. [Concomitant]
     Active Substance: PREDNISONE
  23. FISH OIL [Concomitant]
     Active Substance: FISH OIL

REACTIONS (1)
  - Buttock injury [Unknown]
